FAERS Safety Report 6722692-4 (Version None)
Quarter: 2010Q2

REPORT INFORMATION
  Report Type: 
  Country: None (occurrence: None)
  Receive Date: 20100512
  Receipt Date: 20100503
  Transmission Date: 20101027
  Serious: Yes (Other)
  Sender: FDA-Public Use
  Company Number: US-B.I. PHARMACEUTICALS,INC./RIDGEFIELD-2010-BP-05127BP

PATIENT
  Sex: Female

DRUGS (24)
  1. MOBIC [Suspect]
     Route: 048
  2. LISINOPRIL AND HYDROCHLOROTHIAZIDE [Suspect]
     Indication: HYPERTENSION
  3. XOPENEX [Concomitant]
     Indication: ASTHMA
     Route: 055
  4. AMITRIPTLINE HYDROCHLORIDE TAB [Concomitant]
     Indication: PAIN
     Dosage: 50 MG
  5. AMITRIPTLINE HYDROCHLORIDE TAB [Concomitant]
     Indication: SLEEP DISORDER
     Dosage: 25 MG
  6. ROBAXIN [Concomitant]
     Indication: MUSCLE RELAXANT THERAPY
     Dosage: 500 MG
  7. CELEBREX [Concomitant]
     Indication: MYALGIA
  8. PSUEDOSERINES [Concomitant]
     Indication: HYPERSENSITIVITY
  9. CLARITIN [Concomitant]
     Indication: HYPERSENSITIVITY
  10. ZYERTEC [Concomitant]
     Indication: HYPERSENSITIVITY
  11. CHLOREMPHINE [Concomitant]
     Indication: HYPERSENSITIVITY
  12. CLARINEX [Concomitant]
     Indication: HYPERSENSITIVITY
  13. FLONASE [Concomitant]
  14. TRIAMTERINES HCTZ [Concomitant]
     Dosage: 37.5/25
  15. METHOCARBAMOL [Concomitant]
  16. NAPROXEN [Concomitant]
  17. IBUPROFEN [Concomitant]
  18. NASONEX [Concomitant]
     Route: 045
  19. BECONASE AQ [Concomitant]
     Dosage: %
     Route: 045
  20. FLUTICASONE PROPIONATE [Concomitant]
     Route: 045
  21. NEXIUM [Concomitant]
     Indication: DYSPEPSIA
     Dosage: 40 MG
  22. ZANTAC [Concomitant]
     Indication: DYSPEPSIA
     Route: 048
  23. ZANTAC [Concomitant]
     Indication: GASTROOESOPHAGEAL REFLUX DISEASE
  24. ZANTAC [Concomitant]
     Indication: HYPERCHLORHYDRIA

REACTIONS (2)
  - ANAEMIA [None]
  - HYPOKALAEMIA [None]
